FAERS Safety Report 20807408 (Version 1)
Quarter: 2022Q2

REPORT INFORMATION
  Report Type: Spontaneous
  Country: US (occurrence: US)
  Receive Date: 20220510
  Receipt Date: 20220510
  Transmission Date: 20220721
  Serious: No
  Sender: FDA-Public Use
  Company Number: US-UNITED THERAPEUTICS-UNT-2022-009195

PATIENT
  Age: 57 Year
  Sex: Female

DRUGS (2)
  1. REMODULIN [Suspect]
     Active Substance: TREPROSTINIL
     Indication: Pulmonary arterial hypertension
     Dosage: UNK, CONTINUING
     Route: 041
     Dates: start: 202006
  2. REMODULIN [Suspect]
     Active Substance: TREPROSTINIL
     Dosage: 0.031 ?G/KG (PUMP RATE 39ML/24 HOURS), CONTINUING
     Route: 041

REACTIONS (7)
  - Device breakage [Unknown]
  - Device maintenance issue [Unknown]
  - Device leakage [Unknown]
  - Accidental exposure to product [Unknown]
  - Exposure via skin contact [Unknown]
  - Skin irritation [Unknown]
  - Product communication issue [Unknown]

NARRATIVE: CASE EVENT DATE: 20220423
